FAERS Safety Report 7646503-8 (Version None)
Quarter: 2011Q3

REPORT INFORMATION
  Report Type: 
  Country: None (occurrence: None)
  Receive Date: 20110801
  Receipt Date: 20110725
  Transmission Date: 20111222
  Serious: Yes (Other)
  Sender: FDA-Public Use
  Company Number: CH-JNJFOC-20110606855

PATIENT
  Sex: Female

DRUGS (7)
  1. DOXORUBICIN HCL [Suspect]
     Route: 042
  2. LAXATIVES [Concomitant]
     Indication: PROPHYLAXIS
     Route: 065
  3. DOXORUBICIN HYDROCHLORIDE [Suspect]
     Indication: BREAST CANCER METASTATIC
     Route: 042
  4. DOXORUBICIN HYDROCHLORIDE [Suspect]
     Route: 042
  5. VINFLUNINE [Suspect]
     Route: 042
  6. VINFLUNINE [Suspect]
     Indication: BREAST CANCER METASTATIC
     Route: 042
  7. DOXORUBICIN HCL [Suspect]
     Indication: BREAST CANCER METASTATIC
     Route: 042

REACTIONS (1)
  - COLITIS [None]
